FAERS Safety Report 6936779-4 (Version None)
Quarter: 2010Q3

REPORT INFORMATION
  Report Type: 
  Country: None (occurrence: None)
  Receive Date: 20100823
  Receipt Date: 20100816
  Transmission Date: 20110219
  Serious: Yes (Life-Threatening)
  Sender: FDA-Public Use
  Company Number: JP-MERCK-1007USA04058

PATIENT
  Age: 88 Year
  Sex: Female

DRUGS (4)
  1. JANUVIA [Suspect]
     Indication: TYPE 2 DIABETES MELLITUS
     Route: 048
     Dates: start: 20100415, end: 20100716
  2. FUROSEMIDE [Concomitant]
     Route: 065
  3. ARICEPT [Concomitant]
     Route: 065
  4. VESICARE [Concomitant]
     Route: 065

REACTIONS (1)
  - PANCYTOPENIA [None]
